FAERS Safety Report 6104867-0 (Version None)
Quarter: 2009Q1

REPORT INFORMATION
  Report Type: 
  Country: None (occurrence: None)
  Receive Date: 20090306
  Receipt Date: 20090224
  Transmission Date: 20090719
  Serious: Yes (Other)
  Sender: FDA-Public Use
  Company Number: US-BAYER-200912373NA

PATIENT
  Age: 33 Year
  Sex: Female

DRUGS (3)
  1. AVELOX [Suspect]
     Indication: PHARYNGITIS STREPTOCOCCAL
     Dosage: TOTAL DAILY DOSE: 400 MG  UNIT DOSE: 400 MG
     Dates: start: 20081215
  2. AVELOX [Suspect]
     Dosage: TOTAL DAILY DOSE: 400 MG  UNIT DOSE: 400 MG
     Dates: start: 20081101
  3. AVELOX [Suspect]
     Dosage: TOTAL DAILY DOSE: 400 MG  UNIT DOSE: 400 MG
     Dates: start: 20070712

REACTIONS (10)
  - ANAPHYLACTIC REACTION [None]
  - CHEST DISCOMFORT [None]
  - COUGH [None]
  - DYSPNOEA [None]
  - EAR DISCOMFORT [None]
  - LIP SWELLING [None]
  - OEDEMA MOUTH [None]
  - ORAL DISCOMFORT [None]
  - RASH [None]
  - SWELLING FACE [None]
